FAERS Safety Report 10346010 (Version 7)
Quarter: 2016Q1

REPORT INFORMATION
  Report Type: Spontaneous
  Country: US (occurrence: US)
  Receive Date: 20140728
  Receipt Date: 20160127
  Transmission Date: 20160525
  Serious: Yes (Hospitalization, Other)
  Sender: FDA-Public Use
  Company Number: US-JNJFOC-20140715181

PATIENT

DRUGS (2)
  1. INFLIXIMAB, RECOMBINANT [Suspect]
     Active Substance: INFLIXIMAB
     Indication: PSORIASIS
     Route: 042
  2. ADALIMUMAB [Suspect]
     Active Substance: ADALIMUMAB
     Indication: PSORIASIS
     Route: 065

REACTIONS (11)
  - Hepatic cancer [Unknown]
  - Prostate cancer [Unknown]
  - Colon cancer [Unknown]
  - Lung neoplasm malignant [Unknown]
  - Breast cancer [Unknown]
  - Hodgkin^s disease [Unknown]
  - Lymphoma [Unknown]
  - Skin cancer [Unknown]
  - Nosocomial infection [Unknown]
  - Bladder cancer [Unknown]
  - Malignant melanoma [Unknown]
